FAERS Safety Report 6221574-4 (Version None)
Quarter: 2009Q2

REPORT INFORMATION
  Report Type: 
  Country: None (occurrence: None)
  Receive Date: 20090610
  Receipt Date: 20080529
  Transmission Date: 20091009
  Serious: Yes (Other)
  Sender: FDA-Public Use
  Company Number: US-JNJFOC-20080403300

PATIENT
  Sex: Female
  Weight: 73.03 kg

DRUGS (6)
  1. TOPAMAX [Suspect]
     Route: 048
  2. TOPAMAX [Suspect]
     Indication: WEIGHT DECREASED
     Route: 048
  3. CLIMARA [Concomitant]
     Indication: HOT FLUSH
     Route: 062
  4. CLIMARA [Concomitant]
     Indication: HORMONE REPLACEMENT THERAPY
     Route: 062
  5. WELLBUTRIN XL [Concomitant]
     Route: 048
  6. PHENTERMINE [Concomitant]
     Indication: WEIGHT DECREASED

REACTIONS (3)
  - INTRAOCULAR PRESSURE INCREASED [None]
  - NYSTAGMUS [None]
  - VISION BLURRED [None]
